FAERS Safety Report 9207728 (Version 1)
Quarter: 2013Q2

REPORT INFORMATION
  Report Type: Spontaneous
  Country: FR (occurrence: FR)
  Receive Date: 20130403
  Receipt Date: 20130403
  Transmission Date: 20140414
  Serious: Yes (Hospitalization)
  Sender: FDA-Public Use
  Company Number: FR-PFIZER INC-2013104297

PATIENT
  Age: 22 Year
  Sex: Male

DRUGS (3)
  1. SODIUM CROMOGLICATE [Suspect]
     Indication: PRODUCT USED FOR UNKNOWN INDICATION
     Dosage: UNK
     Route: 065
     Dates: start: 20130301, end: 20130304
  2. ACTIFED [Suspect]
     Indication: NASOPHARYNGITIS
     Dosage: UNK
     Route: 048
     Dates: start: 20130301, end: 20130304
  3. BIOCALYPTOL [Suspect]
     Indication: PRODUCT USED FOR UNKNOWN INDICATION
     Dosage: UNK
     Route: 048
     Dates: start: 20130301, end: 20130304

REACTIONS (5)
  - Drug eruption [Recovering/Resolving]
  - Toxic skin eruption [Recovering/Resolving]
  - Erythema [Recovering/Resolving]
  - Rash pustular [Recovering/Resolving]
  - Rash [Recovering/Resolving]
